FAERS Safety Report 7967556-3 (Version None)
Quarter: 2011Q4

REPORT INFORMATION
  Report Type: 
  Country: None (occurrence: None)
  Receive Date: 20111209
  Receipt Date: 20111129
  Transmission Date: 20120403
  Serious: Yes (Hospitalization)
  Sender: FDA-Public Use
  Company Number: US-JNJFOC-20050802791

PATIENT
  Sex: Female
  Weight: 97.52 kg

DRUGS (12)
  1. REMICADE [Suspect]
     Dates: start: 20050504
  2. NEXIUM [Concomitant]
  3. DARVOCET [Concomitant]
  4. ZOLOFT [Concomitant]
  5. AMBIEN [Concomitant]
  6. PLAQUENIL [Concomitant]
  7. REMICADE [Suspect]
     Indication: RHEUMATOID ARTHRITIS
     Dates: start: 20020911
  8. PREDNISONE TAB [Concomitant]
     Indication: RHEUMATOID ARTHRITIS
     Dates: start: 20001001
  9. PREDNISONE TAB [Concomitant]
  10. METHOTREXATE [Concomitant]
     Indication: RHEUMATOID ARTHRITIS
     Dates: start: 20001001
  11. FOSAMAX [Concomitant]
  12. CALCIUM [Concomitant]

REACTIONS (2)
  - PNEUMONIA LEGIONELLA [None]
  - LIVER FUNCTION TEST ABNORMAL [None]
